FAERS Safety Report 22076800 (Version 3)
Quarter: 2023Q2

REPORT INFORMATION
  Report Type: Spontaneous
  Country: US (occurrence: None)
  Receive Date: 20230309
  Receipt Date: 20230428
  Transmission Date: 20230722
  Serious: Yes (Hospitalization)
  Sender: FDA-Public Use
  Company Number: US-FARMAPROD-202302-0489

PATIENT
  Age: 75 Year
  Sex: Male
  Weight: 136.20 kg

DRUGS (22)
  1. OXERVATE [Suspect]
     Active Substance: CENEGERMIN-BKBJ
     Indication: Neurotrophic keratopathy
     Route: 047
     Dates: start: 20230216
  2. COLCHICINE [Concomitant]
     Active Substance: COLCHICINE
  3. POLYETHYLENE GLYCOL 3350 [Concomitant]
     Active Substance: POLYETHYLENE GLYCOL 3350
     Dosage: PACK
  4. BACLOFEN [Concomitant]
     Active Substance: BACLOFEN
  5. XARELTO [Concomitant]
     Active Substance: RIVAROXABAN
  6. EPIPEN [Concomitant]
     Active Substance: EPINEPHRINE
     Dosage: 2-PAK 0.3 MG /0.3 AUTO INJECTOR
  7. FEBUXOSTAT [Concomitant]
     Active Substance: FEBUXOSTAT
  8. NITROSTAT [Concomitant]
     Active Substance: NITROGLYCERIN
     Route: 060
  9. MORPHINE SULFATE [Concomitant]
     Active Substance: MORPHINE SULFATE
     Dosage: EXTENDED RELEASE
  10. PRAMIPEXOLE DIHYDROCHLORIDE [Concomitant]
     Active Substance: PRAMIPEXOLE DIHYDROCHLORIDE
  11. CALCITRIOL [Concomitant]
     Active Substance: CALCITRIOL
  12. FLUOXETINE HYDROCHLORIDE [Concomitant]
     Active Substance: FLUOXETINE HYDROCHLORIDE
  13. ATORVASTATIN CALCIUM [Concomitant]
     Active Substance: ATORVASTATIN CALCIUM
  14. LISINOPRIL [Concomitant]
     Active Substance: LISINOPRIL
  15. MORPHINE SULFATE [Concomitant]
     Active Substance: MORPHINE SULFATE
     Dosage: EXTENDED RELEASE
  16. FLUOXETINE HYDROCHLORIDE [Concomitant]
     Active Substance: FLUOXETINE HYDROCHLORIDE
  17. FUROSEMIDE [Concomitant]
     Active Substance: FUROSEMIDE
  18. AMITRIPTYLINE HYDROCHLORIDE [Concomitant]
     Active Substance: AMITRIPTYLINE HYDROCHLORIDE
  19. VITAMIN C [Concomitant]
     Active Substance: ASCORBIC ACID
  20. VITAMIN D3 [Concomitant]
     Active Substance: CHOLECALCIFEROL
  21. ZOLPIDEM TARTRATE [Concomitant]
     Active Substance: ZOLPIDEM TARTRATE
  22. SENOKOT-S [Concomitant]
     Active Substance: DOCUSATE SODIUM\SENNOSIDES
     Dosage: 8.6 MG - 50 MG

REACTIONS (5)
  - Fall [Unknown]
  - Intestinal obstruction [Unknown]
  - Rib fracture [Unknown]
  - Vomiting [Unknown]
  - Eye contusion [Unknown]

NARRATIVE: CASE EVENT DATE: 20230222
